FAERS Safety Report 23418148 (Version 1)
Quarter: 2024Q1

REPORT INFORMATION
  Report Type: Report from Study
  Country: GB (occurrence: GB)
  Receive Date: 20240118
  Receipt Date: 20240118
  Transmission Date: 20240409
  Serious: Yes (Hospitalization)
  Sender: FDA-Public Use
  Company Number: GB-ELI_LILLY_AND_COMPANY-GB202310014407

PATIENT
  Age: 69 Year
  Sex: Male
  Weight: 97.1 kg

DRUGS (1)
  1. TALTZ [Suspect]
     Active Substance: IXEKIZUMAB
     Indication: Psoriasis
     Dosage: 80 MG, OTHER (FORTNIGHTLY)
     Route: 058
     Dates: start: 202208, end: 20231006

REACTIONS (2)
  - Acute kidney injury [Recovered/Resolved]
  - Cellulitis streptococcal [Recovered/Resolved]

NARRATIVE: CASE EVENT DATE: 20231019
